FAERS Safety Report 23192555 (Version 1)
Quarter: 2023Q4

REPORT INFORMATION
  Report Type: Spontaneous
  Country: CA (occurrence: CA)
  Receive Date: 20231116
  Receipt Date: 20231116
  Transmission Date: 20240110
  Serious: Yes (Other)
  Sender: FDA-Public Use
  Company Number: CA-TEVA-2023-CA-2944201

PATIENT
  Age: 5 Decade
  Sex: Male

DRUGS (1)
  1. METHOTREXATE [Suspect]
     Active Substance: METHOTREXATE
     Indication: Corneal epithelial downgrowth
     Dosage: 400 MICROG/0.1ML , ADDITIONAL INFO: ROUTE: {INTRAVITREAL}
     Route: 050

REACTIONS (3)
  - Retinal pigment epitheliopathy [Recovered/Resolved]
  - Infective keratitis [Unknown]
  - Pulmonary tuberculosis [Unknown]
